FAERS Safety Report 5811451-2 (Version None)
Quarter: 2008Q3

REPORT INFORMATION
  Report Type: 
  Country: None (occurrence: None)
  Receive Date: 20080711
  Receipt Date: 20080704
  Transmission Date: 20090109
  Serious: Yes (Hospitalization, Other)
  Sender: FDA-Public Use
  Company Number: 2008-01680

PATIENT
  Age: 80 Year
  Sex: Male
  Weight: 70 kg

DRUGS (3)
  1. VELCADE [Suspect]
     Indication: MULTIPLE MYELOMA
     Dosage: INTRAVENOUS
     Route: 042
     Dates: start: 20080101
  2. FENTANYL [Concomitant]
  3. MORPHINE SULFATE [Concomitant]

REACTIONS (10)
  - ANOREXIA [None]
  - GAIT DISTURBANCE [None]
  - INSOMNIA [None]
  - MUSCLE ATROPHY [None]
  - MYALGIA [None]
  - NAUSEA [None]
  - PARAESTHESIA [None]
  - SENSORY LOSS [None]
  - THROMBOCYTOPENIA [None]
  - WEIGHT DECREASED [None]
